FAERS Safety Report 16185876 (Version 1)
Quarter: 2019Q2

REPORT INFORMATION
  Report Type: Report from Study
  Country: BR (occurrence: BR)
  Receive Date: 20190411
  Receipt Date: 20190411
  Transmission Date: 20190711
  Serious: Yes (Other)
  Sender: FDA-Public Use
  Company Number: PHHY2019BR082714

PATIENT
  Age: 82 Year
  Sex: Male

DRUGS (3)
  1. GLIFAGE [Concomitant]
     Active Substance: METFORMIN HYDROCHLORIDE
     Indication: PRODUCT USED FOR UNKNOWN INDICATION
     Route: 065
  2. LOSARTAN. [Suspect]
     Active Substance: LOSARTAN
     Indication: BLOOD PRESSURE INCREASED
     Dosage: UNK (50 UNITS NOT SPECIFIED)
     Route: 065
  3. HIGROTON [Suspect]
     Active Substance: CHLORTHALIDONE
     Indication: BLOOD PRESSURE INCREASED
     Route: 065

REACTIONS (5)
  - Diabetes mellitus [Unknown]
  - Blood pressure fluctuation [Unknown]
  - Peripheral swelling [Recovered/Resolved]
  - Blood pressure increased [Unknown]
  - Drug ineffective [Unknown]

NARRATIVE: CASE EVENT DATE: 201903
